FAERS Safety Report 10384713 (Version 2)
Quarter: 2014Q3

REPORT INFORMATION
  Report Type: Spontaneous
  Country: US (occurrence: US)
  Receive Date: 20140814
  Receipt Date: 20140922
  Transmission Date: 20150326
  Serious: Yes (Death)
  Sender: FDA-Public Use
  Company Number: US-SA-2014SA106521

PATIENT
  Age: 83 Year
  Sex: Male
  Weight: 61 kg

DRUGS (4)
  1. RENVELA [Suspect]
     Active Substance: SEVELAMER CARBONATE
     Indication: HYPERPHOSPHATAEMIA
     Route: 048
     Dates: start: 20140501
  2. HEPARIN [Concomitant]
     Active Substance: HEPARIN SODIUM
     Dosage: DOSE:1000 UNIT(S)
     Dates: start: 20140724, end: 20140802
  3. ACETAMINOPHEN. [Concomitant]
     Active Substance: ACETAMINOPHEN
     Indication: PAIN
     Dates: start: 20140602, end: 20140802
  4. CALCITROL [Concomitant]
     Active Substance: CALCITRIOL
     Indication: SECONDARY HYPERTENSION
     Dates: start: 20140729, end: 20140802

REACTIONS (1)
  - Death [Fatal]

NARRATIVE: CASE EVENT DATE: 20140802
